FAERS Safety Report 13110983 (Version 1)
Quarter: 2017Q1

REPORT INFORMATION
  Report Type: Spontaneous
  Country: GR (occurrence: GR)
  Receive Date: 20170112
  Receipt Date: 20170112
  Transmission Date: 20170428
  Serious: Yes (Other)
  Sender: FDA-Public Use
  Company Number: GR-009507513-1611GRC006749

PATIENT
  Sex: Female

DRUGS (5)
  1. REMERON [Suspect]
     Active Substance: MIRTAZAPINE
     Indication: INSOMNIA
     Dosage: 10-15 MG DAILY
     Route: 048
     Dates: start: 201610, end: 20161127
  2. D3 FIX [Concomitant]
     Dosage: UNK
  3. T4 [Concomitant]
     Active Substance: LEVOTHYROXINE
     Dosage: UNK
  4. FILICINE [Concomitant]
     Dosage: UNK
  5. TROFOCARD [Concomitant]
     Dosage: UNK

REACTIONS (3)
  - Off label use [Unknown]
  - Maternal exposure during pregnancy [Recovered/Resolved]
  - Caesarean section [Unknown]

NARRATIVE: CASE EVENT DATE: 201610
